FAERS Safety Report 6722705-X (Version None)
Quarter: 2010Q2

REPORT INFORMATION
  Report Type: 
  Country: None (occurrence: None)
  Receive Date: 20100512
  Receipt Date: 20100429
  Transmission Date: 20101027
  Serious: Yes (Hospitalization)
  Sender: FDA-Public Use
  Company Number: NL-AMGEN-QUU410300

PATIENT
  Age: 55 Year
  Sex: Male
  Weight: 92 kg

DRUGS (3)
  1. ENBREL [Suspect]
     Indication: ANKYLOSING SPONDYLITIS
     Route: 058
     Dates: start: 20070818
  2. PANTOZOL [Concomitant]
     Dosage: AS NEEDED
  3. IBUPROFEN [Concomitant]
     Dosage: 800 MG ONCE OR TWICE

REACTIONS (1)
  - HIP FRACTURE [None]
